FAERS Safety Report 4341399-4 (Version None)
Quarter: 2004Q2

REPORT INFORMATION
  Report Type: 
  Country: None (occurrence: None)
  Receive Date: 20040415
  Receipt Date: 20040405
  Transmission Date: 20050107
  Serious: Yes (Hospitalization)
  Sender: FDA-Public Use
  Company Number: DE-SHR-04-020283

PATIENT
  Sex: Female

DRUGS (1)
  1. MIRENA [Suspect]
     Dosage: 20  UG/DAY, CONT, INTRA-UTERINE
     Route: 015

REACTIONS (5)
  - AMENORRHOEA [None]
  - FEMALE GENITAL ORGANS X-RAY ABNORMAL [None]
  - INTRA-UTERINE CONTRACEPTIVE DEVICE EXPELLED [None]
  - IUCD COMPLICATION [None]
  - UTERINE LEIOMYOMA [None]
